FAERS Safety Report 25926916 (Version 1)
Quarter: 2025Q4

REPORT INFORMATION
  Report Type: Spontaneous
  Country: US (occurrence: None)
  Receive Date: 20251015
  Receipt Date: 20251015
  Transmission Date: 20260118
  Serious: No
  Sender: FDA-CTU
  Company Number: None

PATIENT
  Age: 49 Year
  Sex: Female
  Weight: 85.73 kg

DRUGS (1)
  1. NYVEPRIA [Suspect]
     Active Substance: PEGFILGRASTIM-APGF
     Indication: Neutropenia
     Route: 058
     Dates: start: 20241126, end: 20241126

REACTIONS (7)
  - Sensation of foreign body [None]
  - Pruritus [None]
  - Diarrhoea [None]
  - Dyspepsia [None]
  - Migraine [None]
  - Bone pain [None]
  - Injection related reaction [None]

NARRATIVE: CASE EVENT DATE: 20241126
